FAERS Safety Report 8926159 (Version 1)
Quarter: 2012Q4

REPORT INFORMATION
  Report Type: 
  Country: US (occurrence: US)
  Receive Date: 20121127
  Receipt Date: 20121127
  Transmission Date: 20130627
  Serious: No
  Sender: FDA-Public Use
  Company Number: US-ACTELION-A-US2012-74923

PATIENT
  Age: 33 Year
  Sex: Female
  Weight: 99.77 kg

DRUGS (2)
  1. TRACLEER [Suspect]
     Indication: PULMONARY ARTERIAL HYPERTENSION
     Dosage: 125 mg, bid
     Route: 048
     Dates: start: 201102
  2. SILDENAFIL [Concomitant]

REACTIONS (4)
  - Pregnancy [Not Recovered/Not Resolved]
  - Exposure during pregnancy [None]
  - Human chorionic gonadotropin abnormal [None]
  - Pregnancy with contraceptive device [None]
